FAERS Safety Report 6135775-7 (Version None)
Quarter: 2009Q1

REPORT INFORMATION
  Report Type: 
  Country: None (occurrence: None)
  Receive Date: 20090327
  Receipt Date: 20090318
  Transmission Date: 20090719
  Serious: Yes (Other)
  Sender: FDA-Public Use
  Company Number: US-WYE-H08423209

PATIENT
  Sex: Female
  Weight: 63.11 kg

DRUGS (6)
  1. PRISTIQ [Suspect]
     Indication: ANGER
     Route: 048
     Dates: start: 20090105, end: 20090310
  2. PRISTIQ [Suspect]
     Indication: MAJOR DEPRESSION
  3. ZOLOFT [Suspect]
     Dates: start: 20090311
  4. LOVAZA [Concomitant]
     Dosage: UNKNOWN DAILY DOSE
  5. ADDERALL 10 [Concomitant]
  6. FLINTSTONES MULTIPLE VITAMINS [Concomitant]
     Dosage: UNKNOWN DAILY DOSE

REACTIONS (10)
  - ABNORMAL BEHAVIOUR [None]
  - ANGER [None]
  - CONDITION AGGRAVATED [None]
  - CRYING [None]
  - DRUG WITHDRAWAL SYNDROME [None]
  - EAR DISCOMFORT [None]
  - EATING DISORDER [None]
  - HALLUCINATION, VISUAL [None]
  - MIGRAINE [None]
  - URINARY INCONTINENCE [None]
